FAERS Safety Report 25478126 (Version 1)
Quarter: 2025Q2

REPORT INFORMATION
  Report Type: Other
  Country: AU (occurrence: AU)
  Receive Date: 20250625
  Receipt Date: 20250625
  Transmission Date: 20250717
  Serious: Yes (Hospitalization)
  Sender: ANI
  Company Number: AU-ANIPHARMA-023248

PATIENT
  Sex: Female

DRUGS (15)
  1. AMITRIPTYLINE [Suspect]
     Active Substance: AMITRIPTYLINE
     Indication: Depression
  2. MORPHINE [Suspect]
     Active Substance: MORPHINE
     Indication: Analgesic therapy
  3. IRON [Concomitant]
     Active Substance: IRON
     Indication: Supplementation therapy
  4. METRONIDAZOLE [Concomitant]
     Active Substance: METRONIDAZOLE
     Indication: Antibiotic therapy
  5. LITHIUM [Concomitant]
     Active Substance: LITHIUM
     Indication: Bipolar disorder
  6. OLANZAPINE [Concomitant]
     Active Substance: OLANZAPINE
     Indication: Bipolar disorder
  7. QUETIAPINE [Concomitant]
     Active Substance: QUETIAPINE
     Indication: Bipolar disorder
  8. RISPERIDONE [Concomitant]
     Active Substance: RISPERIDONE
     Indication: Bipolar disorder
  9. ARIPIPRAZOLE [Concomitant]
     Active Substance: ARIPIPRAZOLE
     Indication: Bipolar disorder
  10. AMISULPRIDE [Concomitant]
     Active Substance: AMISULPRIDE
     Indication: Bipolar disorder
  11. VALPROATE SODIUM [Concomitant]
     Active Substance: VALPROATE SODIUM
     Indication: Bipolar disorder
  12. CARBAMAZEPINE [Concomitant]
     Active Substance: CARBAMAZEPINE
     Indication: Bipolar disorder
  13. ESCITALOPRAM [Concomitant]
     Active Substance: ESCITALOPRAM OXALATE
     Indication: Bipolar disorder
  14. LORAZEPAM [Concomitant]
     Active Substance: LORAZEPAM
     Indication: Anxiety
  15. LORAZEPAM [Concomitant]
     Active Substance: LORAZEPAM
     Indication: Insomnia

REACTIONS (3)
  - Condition aggravated [Recovered/Resolved]
  - Arthralgia [Unknown]
  - Urticaria [Unknown]
